FAERS Safety Report 12653554 (Version 1)
Quarter: 2016Q3

REPORT INFORMATION
  Report Type: Spontaneous
  Country: US (occurrence: US)
  Receive Date: 20160815
  Receipt Date: 20160815
  Transmission Date: 20161109
  Serious: Yes (Hospitalization)
  Sender: FDA-Public Use
  Company Number: US-BEH-2016072391

PATIENT
  Sex: Female
  Weight: 79.37 kg

DRUGS (30)
  1. BERINERT [Suspect]
     Active Substance: HUMAN C1-ESTERASE INHIBITOR
     Indication: HEREDITARY ANGIOEDEMA
     Dosage: 1500 IU AS DIRECTED
     Route: 042
     Dates: start: 20120216
  2. TRAZODONE [Concomitant]
     Active Substance: TRAZODONE HYDROCHLORIDE
  3. METFORMIN [Concomitant]
     Active Substance: METFORMIN HYDROCHLORIDE
  4. NEUPRO [Concomitant]
     Active Substance: ROTIGOTINE
  5. PLAVIX [Concomitant]
     Active Substance: CLOPIDOGREL BISULFATE
  6. CRESTOR [Concomitant]
     Active Substance: ROSUVASTATIN CALCIUM
  7. CARVEDILOL. [Concomitant]
     Active Substance: CARVEDILOL
  8. DIPHENHYDRAMINE. [Concomitant]
     Active Substance: DIPHENHYDRAMINE
  9. FLUOXETINE [Concomitant]
     Active Substance: FLUOXETINE HYDROCHLORIDE
  10. CLONAZEPAM. [Concomitant]
     Active Substance: CLONAZEPAM
  11. COENZYME Q10 [Concomitant]
     Active Substance: UBIDECARENONE
  12. REQUIP [Concomitant]
     Active Substance: ROPINIROLE HYDROCHLORIDE
  13. NEXIUM [Concomitant]
     Active Substance: ESOMEPRAZOLE MAGNESIUM
  14. ASPIRIN. [Concomitant]
     Active Substance: ASPIRIN
  15. EPIPEN [Concomitant]
     Active Substance: EPINEPHRINE
  16. JANUVIA [Concomitant]
     Active Substance: SITAGLIPTIN PHOSPHATE
  17. MULTIVITAMIN                       /00097801/ [Concomitant]
     Active Substance: VITAMINS
  18. GABAPENTIN. [Concomitant]
     Active Substance: GABAPENTIN
  19. AMOXICILLIN CLAVULANIC ACID [Concomitant]
     Active Substance: AMOXICILLIN\CLAVULANIC ACID
  20. TRADJENTA [Concomitant]
     Active Substance: LINAGLIPTIN
  21. CALCIUM+D3 [Concomitant]
  22. KALBITOR [Concomitant]
     Active Substance: ECALLANTIDE
  23. PROCHLORPERAZINE MALEATE. [Concomitant]
     Active Substance: PROCHLORPERAZINE MALEATE
  24. TYLENOL EXTRA STRENGTH [Concomitant]
     Active Substance: ACETAMINOPHEN
  25. BUTALBITAL W/CAFFEINE/CODEINE/PARACETAMOL [Concomitant]
     Active Substance: ACETAMINOPHEN\BUTALBITAL\CAFFEINE\CODEINE PHOSPHATE
  26. AMITRIPTYLINEHYDROCHLORIDE [Concomitant]
  27. TRIMETHOPRIM. [Concomitant]
     Active Substance: TRIMETHOPRIM
  28. MACRODANTIN [Concomitant]
     Active Substance: NITROFURANTOIN
  29. SODIUM CHLORIDE. [Concomitant]
     Active Substance: SODIUM CHLORIDE
  30. STERILE WATER [Concomitant]
     Active Substance: WATER

REACTIONS (2)
  - Diarrhoea [Unknown]
  - Pyrexia [Unknown]
